FAERS Safety Report 23839010 (Version 3)
Quarter: 2024Q3

REPORT INFORMATION
  Report Type: Spontaneous
  Country: JP (occurrence: JP)
  Receive Date: 20240509
  Receipt Date: 20240709
  Transmission Date: 20241017
  Serious: Yes (Hospitalization)
  Sender: EISAI
  Company Number: JP-Eisai-EC-2024-165130

PATIENT
  Age: 35 Year
  Sex: Female

DRUGS (4)
  1. ERIBULIN [Suspect]
     Active Substance: ERIBULIN
     Indication: Breast cancer
     Dosage: 1.4 MG/MM2
     Route: 042
     Dates: start: 20210701, end: 20210722
  2. ERIBULIN [Suspect]
     Active Substance: ERIBULIN
     Dosage: 1.1 MG/MM2
     Route: 042
  3. ERIBULIN [Suspect]
     Active Substance: ERIBULIN
     Dosage: 0.9 MG/MM2
     Route: 042
  4. DENOSUMAB [Concomitant]
     Active Substance: DENOSUMAB
     Indication: Product used for unknown indication
     Dosage: DOSE AND FREQUENCY UNKNOWN

REACTIONS (1)
  - Hypocalcaemia [Recovered/Resolved]

NARRATIVE: CASE EVENT DATE: 20210722
